FAERS Safety Report 5376624-4 (Version None)
Quarter: 2007Q2

REPORT INFORMATION
  Report Type: 
  Country: None (occurrence: None)
  Receive Date: 20070628
  Receipt Date: 20070619
  Transmission Date: 20071010
  Serious: Yes (Hospitalization)
  Sender: FDA-Public Use
  Company Number: B0476389A

PATIENT
  Age: 68 Year
  Sex: Female

DRUGS (3)
  1. ALLOPURINOL (FORMULATION UNKNOWN) (GENERIC) (ALLOPURINOL) [Suspect]
  2. CISAPRIDE (FORMULATION UNKNOWN) (CISAPRIDE) [Suspect]
  3. BECONASE [Suspect]

REACTIONS (2)
  - HEPATIC FAILURE [None]
  - TOXIC EPIDERMAL NECROLYSIS [None]
